FAERS Safety Report 9842956 (Version 3)
Quarter: 2014Q1

REPORT INFORMATION
  Report Type: Report from Study
  Country: JP (occurrence: JP)
  Receive Date: 20140124
  Receipt Date: 20140328
  Transmission Date: 20141002
  Serious: Yes (Hospitalization)
  Sender: FDA-Public Use
  Company Number: JP-TAKEDA-2014TUS000512

PATIENT
  Sex: 0

DRUGS (22)
  1. FEBURIC [Suspect]
     Indication: HYPERURICAEMIA
     Dosage: 10 MG, QD
     Route: 048
     Dates: start: 20120818, end: 20121018
  2. FEBURIC [Suspect]
     Dosage: 20 MG, QD
     Route: 048
     Dates: start: 20121019, end: 20130404
  3. BLOPRESS [Concomitant]
     Indication: HYPERTENSION
     Dosage: 8 MG, QD
     Route: 048
     Dates: start: 20081010
  4. NORVASC [Concomitant]
     Indication: HYPERTENSION
     Dosage: 2.5 MG, QD
     Route: 048
     Dates: start: 20100402
  5. BEZATOL SR [Concomitant]
     Indication: LIPIDS ABNORMAL
     Dosage: 400 MG, QD
     Route: 048
     Dates: start: 20100723
  6. MARILEON N [Concomitant]
     Indication: CEREBROVASCULAR DISORDER
     Dosage: 15 MG, QD
     Route: 048
     Dates: start: 20101015
  7. CELECOX [Concomitant]
     Indication: ARTHRITIS
     Dosage: 200 MG, QD
     Route: 048
     Dates: start: 20121206
  8. REBAMIPIDE [Concomitant]
     Indication: PROPHYLAXIS AGAINST GASTROINTESTINAL ULCER
     Dosage: 200 MG, QD
     Route: 048
     Dates: start: 20121206
  9. FOSAMAC [Concomitant]
     Indication: OSTEOPOROSIS
     Dosage: 35 MG, 1/WEEK
     Route: 048
     Dates: start: 20120207
  10. PL [Concomitant]
     Indication: BRONCHITIS
     Dosage: 3 G, QD
     Route: 048
     Dates: start: 20121019, end: 20121023
  11. HUSTAZOL                           /00398402/ [Concomitant]
     Indication: BRONCHITIS
     Dosage: 30 MG, QD
     Route: 048
     Dates: start: 20121019, end: 20121023
  12. ZITHROMAC [Concomitant]
     Indication: BRONCHITIS
     Dosage: 500 MG, QD
     Route: 048
     Dates: start: 20121024, end: 20121026
  13. COUGHNOL [Concomitant]
     Indication: BRONCHITIS
     Dosage: 45 MG, QD
     Route: 048
     Dates: start: 20121024, end: 20121026
  14. EMPYNASE P [Concomitant]
     Indication: BRONCHITIS
     Dosage: 9 DF, QD
     Route: 048
     Dates: start: 20121024, end: 20121026
  15. ELIETEN                            /00041901/ [Concomitant]
     Indication: BRONCHITIS
     Dosage: 15 MG, QD
     Route: 048
     Dates: start: 20121024, end: 20121026
  16. EXCELASE [Concomitant]
     Indication: BRONCHITIS
     Dosage: 3 DF, QD
     Route: 048
     Dates: start: 20121024, end: 20121026
  17. SULPERAZON [Concomitant]
     Indication: PNEUMONIA BACTERIAL
     Dosage: 1 G, QD
     Route: 042
     Dates: start: 20121026, end: 20121026
  18. SULPERAZON [Concomitant]
     Dosage: 2 UNK, UNK
     Dates: start: 20121027, end: 20121029
  19. SOLMALT [Concomitant]
     Indication: PNEUMONIA BACTERIAL
     Dosage: 200 ML, QD
     Route: 042
     Dates: start: 20121026, end: 20121026
  20. LACTEC G [Concomitant]
     Indication: PNEUMONIA BACTERIAL
     Dosage: 500 ML, QD
     Route: 042
     Dates: start: 20121026, end: 20121029
  21. ISOTONIC SODIUM CHLORIDE SOLUTION [Concomitant]
     Indication: PNEUMONIA BACTERIAL
     Dosage: 100 ML, QD
     Route: 042
     Dates: start: 20121026, end: 20121026
  22. SOL-MELCORT [Concomitant]
     Indication: PNEUMONIA BACTERIAL
     Dosage: 40 MG, QD
     Route: 042
     Dates: start: 20121026, end: 20121026

REACTIONS (3)
  - Pneumonia bacterial [Recovered/Resolved]
  - Bronchitis [Recovered/Resolved]
  - Constipation [Recovered/Resolved]
